FAERS Safety Report 8999296 (Version 6)
Quarter: 2013Q4

REPORT INFORMATION
  Report Type: Spontaneous
  Country: US (occurrence: US)
  Receive Date: 20130103
  Receipt Date: 20131121
  Transmission Date: 20140711
  Serious: Yes (Other)
  Sender: FDA-Public Use
  Company Number: US-PFIZER INC-2012332817

PATIENT
  Age: 72 Year
  Sex: Female
  Weight: 90.7 kg

DRUGS (12)
  1. TOVIAZ [Suspect]
     Indication: HYPERTONIC BLADDER
     Dosage: 4 MG, 1X/DAY
     Route: 048
     Dates: start: 2012, end: 201212
  2. TOVIAZ [Suspect]
     Indication: URINARY INCONTINENCE
     Dosage: 8 MG, 1X/DAY
  3. TOVIAZ [Suspect]
     Indication: MICTURITION URGENCY
  4. WARFARIN [Concomitant]
     Dosage: 2.5 MG, UNK
  5. WARFARIN [Concomitant]
     Dosage: 3 MG, UNK
  6. LEVOTHYROXINE [Concomitant]
     Indication: THYROID CANCER
     Dosage: 125 UG, 1X/DAY
  7. AMIODARONE [Concomitant]
     Dosage: 200 MG, 1X/DAY
  8. PAROXETINE [Concomitant]
     Dosage: 20 MG, 1X/DAY
  9. METOPROLOL [Concomitant]
     Dosage: 50 MG, 1X/DAY
  10. FUROSEMIDE [Concomitant]
     Dosage: 20 MG, 1X/DAY
  11. LISINOPRIL [Concomitant]
     Dosage: 5 MG, UNK
  12. NAMENDA [Concomitant]
     Dosage: 5 MG, UNK

REACTIONS (21)
  - Fall [Unknown]
  - Fall [Unknown]
  - Balance disorder [Unknown]
  - Upper limb fracture [Unknown]
  - Hand fracture [Unknown]
  - Arthritis [Unknown]
  - Osteoporosis [Unknown]
  - Laceration [Unknown]
  - Pain in extremity [Unknown]
  - Oedema peripheral [Unknown]
  - Arthralgia [Unknown]
  - Joint swelling [Unknown]
  - Osteoarthritis [Unknown]
  - Rheumatoid arthritis [Unknown]
  - Urinary incontinence [Unknown]
  - Oropharyngeal pain [Recovering/Resolving]
  - Micturition disorder [Recovered/Resolved]
  - Bowel movement irregularity [Recovered/Resolved]
  - Micturition urgency [Unknown]
  - Drug ineffective [Unknown]
  - Pollakiuria [Unknown]
